FAERS Safety Report 16052489 (Version 3)
Quarter: 2019Q3

REPORT INFORMATION
  Report Type: Spontaneous
  Country: ES (occurrence: ES)
  Receive Date: 20190308
  Receipt Date: 20190725
  Transmission Date: 20191004
  Serious: Yes (Other)
  Sender: FDA-Public Use
  Company Number: ES-PFIZER INC-2019099972

PATIENT
  Age: 73 Year
  Sex: Female

DRUGS (12)
  1. DEMILOS [Concomitant]
     Active Substance: CALCIUM CARBONATE\CHOLECALCIFEROL
     Dosage: 1, 1X/DAY
  2. METHOTREXATE. [Concomitant]
     Active Substance: METHOTREXATE
     Dosage: 17 MG, WEEKLY
     Route: 058
  3. OMEPRAZOLE. [Concomitant]
     Active Substance: OMEPRAZOLE
     Dosage: 20 MG, 1X/DAY
  4. HIDROFEROL [Concomitant]
     Active Substance: CALCIFEDIOL
     Dosage: 1, CYCLIC (EVERY 15 DAYS)
  5. XELJANZ [Suspect]
     Active Substance: TOFACITINIB CITRATE
     Dosage: 5 MG, 1X/DAY
     Dates: start: 20190103, end: 20190227
  6. ACFOL [Concomitant]
     Active Substance: FOLIC ACID
     Dosage: 1, WEEKLY
  7. DEZACOR [Concomitant]
     Active Substance: DEFLAZACORT
     Dosage: 1, AT BREAKFAST 7 DAYS
  8. DEZACOR [Concomitant]
     Active Substance: DEFLAZACORT
     Dosage: 1/4 AT BREAKFAST UNTIL THE REVIEW
  9. XELJANZ [Suspect]
     Active Substance: TOFACITINIB CITRATE
     Indication: RHEUMATOID ARTHRITIS
     Dosage: 5 MG, 2X/DAY
     Dates: start: 20190103
  10. IDEOS UNIDIA [Concomitant]
     Active Substance: CALCIUM CARBONATE\CHOLECALCIFEROL
     Dosage: 1 DF, DAILY
  11. DEZACOR [Concomitant]
     Active Substance: DEFLAZACORT
     Dosage: 3/4 AT BREAKFAST 7 DAYS
  12. DEZACOR [Concomitant]
     Active Substance: DEFLAZACORT
     Dosage: 1/2 AT BREAKFAST 7 DAYS

REACTIONS (1)
  - Deep vein thrombosis [Recovering/Resolving]

NARRATIVE: CASE EVENT DATE: 20190225
